FAERS Safety Report 4961398-9 (Version None)
Quarter: 2006Q1

REPORT INFORMATION
  Report Type: 
  Country: None (occurrence: None)
  Receive Date: 20060329
  Receipt Date: 20060321
  Transmission Date: 20060701
  Serious: Yes (Hospitalization, Other)
  Sender: FDA-Public Use
  Company Number: 2006-01-1028

PATIENT
  Age: 17 Year
  Sex: Male
  Weight: 47 kg

DRUGS (4)
  1. VIRAFERONPEG [Suspect]
     Indication: HEPATITIS C
     Dosage: 44.44 UG QWK SUBCUTANEOU
     Route: 058
     Dates: start: 20051026, end: 20060113
  2. RIBAVIRIN [Suspect]
     Indication: HEPATITIS C
     Dosage: 400 MG BID ORAL
     Route: 048
     Dates: start: 20051026, end: 20060207
  3. SPECIAFOLDINE [Concomitant]
  4. ORACILLINE (PHENOXYMETHYLPENICILLIN BENZATHINE) [Concomitant]

REACTIONS (3)
  - BONE PAIN [None]
  - GLOMERULONEPHRITIS [None]
  - NEPHROTIC SYNDROME [None]
